FAERS Safety Report 9432490 (Version 1)
Quarter: 2013Q3

REPORT INFORMATION
  Report Type: Spontaneous
  Country: BR (occurrence: BR)
  Receive Date: 20130731
  Receipt Date: 20130731
  Transmission Date: 20140515
  Serious: Yes (Hospitalization, Other)
  Sender: FDA-Public Use
  Company Number: BR-NOVOPROD-384003

PATIENT
  Sex: Female
  Weight: 100 kg

DRUGS (12)
  1. NOVOLIN R [Suspect]
     Indication: TYPE 2 DIABETES MELLITUS
     Dosage: 15 IU, UNK (5IU BEFORE LUNCH, 10IU BEFORE DINNER (IF NECESSARY)
     Route: 058
     Dates: start: 2003
  2. HUMULIN N [Suspect]
     Indication: TYPE 2 DIABETES MELLITUS
     Dosage: 120 IU, UNK (50IU MORNING, 30IU BEFORE LUNCH AND 40IU NIGHT)
     Route: 058
  3. RANITIDINE [Concomitant]
     Dosage: UNK (150 MG)
     Route: 065
  4. ARADOIS [Concomitant]
     Dosage: 50 MG, UNK
     Route: 065
  5. SIMVASTATIN [Concomitant]
     Dosage: UNK
     Route: 065
  6. TAMOXIFEN CITRATE [Concomitant]
     Indication: NEOPLASM MALIGNANT
     Dosage: UNK
     Route: 065
  7. TRYPTANOL                          /00002202/ [Concomitant]
     Indication: DIABETIC NEUROPATHY
     Dosage: UNK
     Route: 065
  8. GLIFAGE [Concomitant]
     Dosage: 850 MG, UNK
     Route: 065
  9. AAS [Concomitant]
     Dosage: UNK
     Route: 065
  10. FRONTAL [Concomitant]
     Indication: ANXIOLYTIC THERAPY
     Dosage: 1 MG, UNK
     Route: 065
  11. CLOPIDOGREL [Concomitant]
     Dosage: 75 MG, UNK
     Route: 065
  12. ATENOLOL [Concomitant]
     Dosage: 50 MG, UNK
     Route: 065

REACTIONS (5)
  - Cerebrovascular accident [Recovered/Resolved]
  - Breast cancer [Recovered/Resolved]
  - Hyperglycaemia [Recovered/Resolved]
  - Drug ineffective [Unknown]
  - Blood glucose increased [Unknown]
